FAERS Safety Report 14484051 (Version 1)
Quarter: 2018Q1

REPORT INFORMATION
  Report Type: Spontaneous
  Country: FR (occurrence: FR)
  Receive Date: 20180205
  Receipt Date: 20180205
  Transmission Date: 20180509
  Serious: Yes (Other)
  Sender: FDA-Public Use
  Company Number: FR-MERCK KGAA-2041362

PATIENT
  Age: 67 Year
  Sex: Female
  Weight: 56 kg

DRUGS (2)
  1. L THYROXIN HENNING [Concomitant]
     Active Substance: LEVOTHYROXINE SODIUM
     Route: 048
     Dates: start: 201712
  2. NOVOTHYROX [Suspect]
     Active Substance: LEVOTHYROXINE SODIUM
     Indication: HYPOTHYROIDISM
     Route: 048
     Dates: end: 201712

REACTIONS (4)
  - Sleep disorder [Recovering/Resolving]
  - Blood thyroid stimulating hormone normal [Recovered/Resolved]
  - Arthralgia [Not Recovered/Not Resolved]
  - Vertigo [Not Recovered/Not Resolved]

NARRATIVE: CASE EVENT DATE: 201710
